FAERS Safety Report 14502181 (Version 3)
Quarter: 2018Q2

REPORT INFORMATION
  Report Type: Spontaneous
  Country: US (occurrence: US)
  Receive Date: 20180208
  Receipt Date: 20180619
  Transmission Date: 20180711
  Serious: Yes (Other)
  Sender: FDA-Public Use
  Company Number: US-ASTRAZENECA-2018SE13790

PATIENT
  Age: 25327 Day
  Sex: Female
  Weight: 98.4 kg

DRUGS (29)
  1. LEXAPRO [Concomitant]
     Active Substance: ESCITALOPRAM OXALATE
     Indication: DEPRESSION
     Dates: start: 2002, end: 2008
  2. ACTOS [Concomitant]
     Active Substance: PIOGLITAZONE HYDROCHLORIDE
  3. LUNESTA [Concomitant]
     Active Substance: ESZOPICLONE
  4. PROTONIX [Suspect]
     Active Substance: PANTOPRAZOLE SODIUM
     Indication: GASTROOESOPHAGEAL REFLUX DISEASE
     Dosage: UNKNOWN, ON NUMEROUS OCCASIONS
     Route: 048
     Dates: start: 2007, end: 2010
  5. ZITHROMAX [Concomitant]
     Active Substance: AZITHROMYCIN DIHYDRATE
  6. CELEBREX [Concomitant]
     Active Substance: CELECOXIB
  7. TRAMADOL-ACETAMINOPHN [Concomitant]
  8. PREVACID [Suspect]
     Active Substance: LANSOPRAZOLE
     Indication: GASTROOESOPHAGEAL REFLUX DISEASE
     Dosage: UNKNOWN, ON NUMEROUS OCCASIONS
     Route: 048
     Dates: start: 2007, end: 2010
  9. NAPROXEN. [Concomitant]
     Active Substance: NAPROXEN
  10. SKELAZIN [Concomitant]
  11. GLIPIZIDE. [Concomitant]
     Active Substance: GLIPIZIDE
  12. PROTONIX [Suspect]
     Active Substance: PANTOPRAZOLE SODIUM
     Indication: GASTROOESOPHAGEAL REFLUX DISEASE
     Dosage: UNKNOWN, ON NUMEROUS OCCASIONS
     Route: 048
     Dates: start: 2011, end: 2016
  13. LAMISIL [Concomitant]
     Active Substance: TERBINAFINE HYDROCHLORIDE
  14. METHYLPHENIDATE. [Concomitant]
     Active Substance: METHYLPHENIDATE
  15. IBUPROFEN. [Concomitant]
     Active Substance: IBUPROFEN
  16. METFORMIN HYDROCHLORIDE. [Concomitant]
     Active Substance: METFORMIN HYDROCHLORIDE
  17. LIPITOR [Concomitant]
     Active Substance: ATORVASTATIN CALCIUM
     Indication: BLOOD CHOLESTEROL INCREASED
     Dates: start: 2001, end: 2010
  18. SIMVASTIN [Concomitant]
     Active Substance: SIMVASTATIN
     Indication: BLOOD CHOLESTEROL INCREASED
     Dates: start: 2011, end: 2016
  19. METHYLPHENIDATE. [Concomitant]
     Active Substance: METHYLPHENIDATE
  20. NEXIUM [Suspect]
     Active Substance: ESOMEPRAZOLE MAGNESIUM
     Indication: GASTROOESOPHAGEAL REFLUX DISEASE
     Dosage: UNKNOWN, ON NUMEROUS OCCASIONS
     Route: 048
     Dates: start: 2007, end: 2010
  21. PREVACID [Suspect]
     Active Substance: LANSOPRAZOLE
     Indication: GASTROOESOPHAGEAL REFLUX DISEASE
     Dosage: UNKNOWN, ON NUMEROUS OCCASIONS
     Route: 048
     Dates: start: 2003, end: 2009
  22. FUROSEMIDE. [Concomitant]
     Active Substance: FUROSEMIDE
     Indication: FLUID RETENTION
     Dates: start: 2000, end: 2016
  23. HUMULIN NOS [Concomitant]
     Active Substance: INSULIN HUMAN
     Indication: DIABETES MELLITUS
     Dates: start: 1999, end: 2005
  24. TUDORZA PRESSAIR [Concomitant]
     Active Substance: ACLIDINIUM BROMIDE
  25. NEXIUM [Suspect]
     Active Substance: ESOMEPRAZOLE MAGNESIUM
     Indication: GASTROOESOPHAGEAL REFLUX DISEASE
     Dosage: UNKNOWN, ON NUMEROUS OCCASIONS
     Route: 048
     Dates: start: 2010
  26. LISINOPRIL. [Concomitant]
     Active Substance: LISINOPRIL
     Indication: HYPERTENSION
  27. ASPIRIN. [Concomitant]
     Active Substance: ASPIRIN
  28. TRIMOX [Concomitant]
     Active Substance: AMOXICILLIN
  29. MOBIC [Concomitant]
     Active Substance: MELOXICAM

REACTIONS (5)
  - Chronic kidney disease [Not Recovered/Not Resolved]
  - Renal failure [Unknown]
  - Tubulointerstitial nephritis [Unknown]
  - Renal injury [Unknown]
  - Acute kidney injury [Unknown]

NARRATIVE: CASE EVENT DATE: 20130927
